FAERS Safety Report 5451900-5 (Version None)
Quarter: 2007Q3

REPORT INFORMATION
  Report Type: 
  Country: None (occurrence: None)
  Receive Date: 20070912
  Receipt Date: 20070829
  Transmission Date: 20080115
  Serious: Yes (Hospitalization)
  Sender: FDA-Public Use
  Company Number: 2007JP003070

PATIENT
  Age: 75 Year
  Sex: Female
  Weight: 45.7 kg

DRUGS (22)
  1. TACROLIMUS [Suspect]
     Indication: RHEUMATOID ARTHRITIS
     Dosage: 0.5 MG, D, ORAL; 1 MG, D, ORAL
     Route: 048
     Dates: start: 20061225, end: 20070207
  2. TACROLIMUS [Suspect]
     Indication: RHEUMATOID ARTHRITIS
     Dosage: 0.5 MG, D, ORAL; 1 MG, D, ORAL
     Route: 048
     Dates: start: 20070208, end: 20070508
  3. PREDNISONE (PREDNISONE) PER ORAL NOS [Suspect]
     Indication: RHEUMATOID ARTHRITIS
     Dosage: 10 MG,   D, ORAL
     Route: 048
  4. BUCILLAMINE (BUCILLAMINE) TABLET [Concomitant]
  5. BENET (RISEDRONATE SODIUM) TABLET [Concomitant]
  6. MINOCYCLINE HYDROCHLORIDE [Concomitant]
  7. ISALON (ALDIOXA) TABLET [Concomitant]
  8. MUCOSTA (REBAMIPIDE) TABLET [Concomitant]
  9. CEROCRAL (IFENPRODIL TARTRATE) [Concomitant]
  10. MARZULENE S (LEVOGLUTAMIDE, SODIUM GUALENATE) [Concomitant]
  11. LANSOPRAZOLE [Concomitant]
  12. AMLODIN (AMLODIPINE BESILATE) ORODISPERSABLE CR TABLET [Concomitant]
  13. NORVASC [Concomitant]
  14. LIPOVAS (SIMVASTATIN) TABLET [Concomitant]
  15. PRAVASTAN (PRAVASTATIN SODIUM) TABLET [Concomitant]
  16. METHYCOBAL (MECOBALAMIN) TABLET [Concomitant]
  17. PRORANON (PRANOPROFEN) EYE DROP [Concomitant]
  18. TIMOPTOL (TIMOLOL MALEATE) EAR DROP [Concomitant]
  19. FLUMETHOLON (FLUOROMETHOLONE)EYE DROP [Concomitant]
  20. ACTONEL [Concomitant]
  21. ULGUT (BENEXATE HYDROCHLORIDE) CAPSULE [Concomitant]
  22. LANSOPRAZOLE [Concomitant]

REACTIONS (5)
  - CONDITION AGGRAVATED [None]
  - CONSTIPATION [None]
  - GLYCOSYLATED HAEMOGLOBIN INCREASED [None]
  - RHEUMATOID ARTHRITIS [None]
  - WHITE BLOOD CELL COUNT INCREASED [None]
